FAERS Safety Report 9475974 (Version 1)
Quarter: 2013Q3

REPORT INFORMATION
  Report Type: Spontaneous
  Country: GB (occurrence: GB)
  Receive Date: 20130826
  Receipt Date: 20130826
  Transmission Date: 20140515
  Serious: Yes (Disabling, Other)
  Sender: FDA-Public Use
  Company Number: GB-PFIZER INC-2013243636

PATIENT
  Age: 41 Year
  Sex: Male
  Weight: 117.02 kg

DRUGS (1)
  1. CHAMPIX [Suspect]
     Indication: SMOKING CESSATION THERAPY
     Dosage: UNK
     Dates: start: 20130729

REACTIONS (4)
  - Aggression [Recovering/Resolving]
  - Abnormal behaviour [Unknown]
  - Depression [Unknown]
  - Personality change [Unknown]
